FAERS Safety Report 8947721 (Version 2)
Quarter: 2012Q4

REPORT INFORMATION
  Report Type: Report from Study
  Country: SI (occurrence: SI)
  Receive Date: 20121205
  Receipt Date: 20121206
  Transmission Date: 20130627
  Serious: Yes (Hospitalization)
  Sender: FDA-Public Use
  Company Number: SI-ROCHE-1163725

PATIENT
  Age: 61 Year
  Sex: Female
  Weight: 85 kg

DRUGS (3)
  1. BEVACIZUMAB [Suspect]
     Indication: COLON CANCER METASTATIC
     Route: 042
     Dates: start: 20111124, end: 20120112
  2. IRINOTECAN [Concomitant]
     Indication: COLON CANCER METASTATIC
     Route: 042
     Dates: start: 20111124, end: 20120112
  3. 5-FLUOROURACIL [Concomitant]
     Indication: COLON CANCER METASTATIC
     Route: 042
     Dates: start: 20111124, end: 20120112

REACTIONS (1)
  - Arthritis [Recovered/Resolved]
